FAERS Safety Report 21559610 (Version 3)
Quarter: 2023Q2

REPORT INFORMATION
  Report Type: Report from Study
  Country: CA (occurrence: CA)
  Receive Date: 20221107
  Receipt Date: 20230525
  Transmission Date: 20230722
  Serious: Yes (Death, Hospitalization)
  Sender: FDA-Public Use
  Company Number: CA-JNJFOC-20221107481

PATIENT
  Age: 76 Year
  Sex: Male

DRUGS (1)
  1. REMICADE [Suspect]
     Active Substance: INFLIXIMAB
     Indication: Crohn^s disease
     Dosage: LAST DOSE ADMINISTERED ON 05-OCT-2022 AND ON 19-OCT-2022
     Route: 042

REACTIONS (3)
  - Death [Fatal]
  - Sepsis [Unknown]
  - Lethargy [Unknown]

NARRATIVE: CASE EVENT DATE: 20221001
